FAERS Safety Report 13110188 (Version 1)
Quarter: 2017Q1

REPORT INFORMATION
  Report Type: Spontaneous
  Country: US (occurrence: US)
  Receive Date: 20170112
  Receipt Date: 20170112
  Transmission Date: 20170428
  Serious: No
  Sender: FDA-Public Use
  Company Number: US-ROCHE-CID000000002114271

PATIENT
  Sex: Male

DRUGS (5)
  1. MSO4 [Concomitant]
     Active Substance: MORPHINE SULFATE
  2. CARDIZEM [Concomitant]
     Active Substance: DILTIAZEM HYDROCHLORIDE
  3. ACTIVASE [Suspect]
     Active Substance: ALTEPLASE
     Indication: ACUTE MYOCARDIAL INFARCTION
     Route: 065
  4. HEPARIN [Concomitant]
     Active Substance: HEPARIN SODIUM
  5. NTG [Concomitant]
     Active Substance: NITROGLYCERIN

REACTIONS (1)
  - Blood creatine phosphokinase increased [Unknown]
